FAERS Safety Report 20012884 (Version 1)
Quarter: 2021Q4

REPORT INFORMATION
  Report Type: Spontaneous
  Country: JP (occurrence: JP)
  Receive Date: 20211029
  Receipt Date: 20211029
  Transmission Date: 20220303
  Serious: Yes (Hospitalization, Other)
  Sender: FDA-Public Use
  Company Number: JP-ARBOR PHARMACEUTICALS, LLC-JP-2021ARB001280

PATIENT

DRUGS (7)
  1. GLIADEL [Suspect]
     Active Substance: CARMUSTINE
     Indication: Glioma
     Dosage: (7.7 MG, 5 TOTAL)
     Dates: start: 20210720, end: 20210724
  2. LOXOPROFEN SODIUM [Concomitant]
     Active Substance: LOXOPROFEN SODIUM
     Indication: Product used for unknown indication
     Dosage: DOSE UNKNOWN, PRN
     Route: 065
     Dates: start: 20210720, end: 20210726
  3. LEVETIRACETAM [Concomitant]
     Active Substance: LEVETIRACETAM
     Indication: Product used for unknown indication
     Dosage: DOSE AND FREQUENCY UNKNOWN
     Route: 065
     Dates: start: 20210721, end: 20210726
  4. VONOPRAZAN FUMARATE [Concomitant]
     Active Substance: VONOPRAZAN FUMARATE
     Indication: Product used for unknown indication
     Dosage: DOSE UNKNOWN, PRN
     Route: 065
     Dates: start: 20210722, end: 20210726
  5. GABAPENTIN [Concomitant]
     Active Substance: GABAPENTIN
     Indication: Product used for unknown indication
     Dosage: DOSE AND FREQUENCY UNKNOWN
     Route: 065
     Dates: start: 20210723, end: 20210726
  6. HERBALS [Concomitant]
     Active Substance: HERBALS
     Indication: Product used for unknown indication
     Dosage: DOSE AND FREQUENCY UNKNOWN
     Route: 065
     Dates: start: 20210723, end: 20210726
  7. HERBALS [Concomitant]
     Active Substance: HERBALS
     Indication: Product used for unknown indication
     Dosage: DOSE AND FREQUENCY UNKNOWN
     Dates: start: 20210723, end: 20210726

REACTIONS (6)
  - Extradural haematoma [Recovered/Resolved]
  - Agitation [Recovered/Resolved]
  - Depressed level of consciousness [Recovered/Resolved]
  - Headache [Recovered/Resolved]
  - Cerebral disorder [Recovered/Resolved]
  - Cerebral haemorrhage [Recovered/Resolved]

NARRATIVE: CASE EVENT DATE: 20210721
